FAERS Safety Report 8221087-4 (Version None)
Quarter: 2012Q1

REPORT INFORMATION
  Report Type: 
  Country: None (occurrence: None)
  Receive Date: 20120320
  Receipt Date: 20120307
  Transmission Date: 20120608
  Serious: Yes (Other)
  Sender: FDA-Public Use
  Company Number: US-ELI_LILLY_AND_COMPANY-US201203002376

PATIENT
  Age: 40 Year
  Sex: Female

DRUGS (1)
  1. GEMZAR [Suspect]
     Indication: BILE DUCT CANCER
     Dosage: 500 MG/M2, EVERY TWO WEEKS
     Dates: end: 20120101

REACTIONS (4)
  - MALIGNANT HYPERTENSION [None]
  - GLOMERULONEPHRITIS [None]
  - NEOPLASM PROGRESSION [None]
  - FLUID RETENTION [None]
